FAERS Safety Report 8243281-9 (Version None)
Quarter: 2012Q1

REPORT INFORMATION
  Report Type: 
  Country: None (occurrence: None)
  Receive Date: 20120314
  Receipt Date: 20101123
  Transmission Date: 20120608
  Serious: Yes (Other)
  Sender: FDA-Public Use
  Company Number: PHHY2010US79663

PATIENT
  Age: 19 Year
  Sex: Female

DRUGS (3)
  1. LITHIUM CARBONATE [Concomitant]
  2. FANAPT [Suspect]
     Dosage: 1 MG, BID; 2 MG, BID; 4 MG, BID
  3. PROZAC [Concomitant]

REACTIONS (5)
  - DYSPNOEA [None]
  - NASAL CONGESTION [None]
  - FATIGUE [None]
  - HEART RATE IRREGULAR [None]
  - DIZZINESS POSTURAL [None]
